FAERS Safety Report 6785872-8 (Version None)
Quarter: 2010Q2

REPORT INFORMATION
  Report Type: 
  Country: None (occurrence: None)
  Receive Date: 20100621
  Receipt Date: 20100621
  Transmission Date: 20101027
  Serious: No
  Sender: FDA-Public Use
  Company Number: None

PATIENT
  Age: 62 Year
  Sex: Male

DRUGS (2)
  1. DILTIAZEM [Suspect]
     Dosage: 20 MG ONCE IV
     Route: 042
     Dates: start: 20100618, end: 20100618
  2. METOPROLOL SUCCINATE [Suspect]
     Dosage: 100 MG BID PO
     Route: 048
     Dates: start: 20100618, end: 20100618

REACTIONS (5)
  - ATRIAL FIBRILLATION [None]
  - BRADYCARDIA [None]
  - HYPOTENSION [None]
  - LETHARGY [None]
  - TREATMENT NONCOMPLIANCE [None]
